FAERS Safety Report 22601788 (Version 1)
Quarter: 2023Q2

REPORT INFORMATION
  Report Type: Report from Study
  Country: BR (occurrence: BR)
  Receive Date: 20230614
  Receipt Date: 20230614
  Transmission Date: 20230721
  Serious: Yes (Other)
  Sender: FDA-Public Use
  Company Number: BR-JNJFOC-20230428996

PATIENT
  Age: 69 Year
  Sex: Female

DRUGS (10)
  1. SIMPONI [Suspect]
     Active Substance: GOLIMUMAB
     Indication: Psoriatic arthropathy
     Route: 058
     Dates: start: 20230214
  2. SIMPONI [Suspect]
     Active Substance: GOLIMUMAB
     Route: 058
     Dates: start: 20230214
  3. METHOTREXATE [Suspect]
     Active Substance: METHOTREXATE
     Indication: Product used for unknown indication
     Route: 065
  4. LOSARTAN [Concomitant]
     Active Substance: LOSARTAN
  5. ASPIRIN [Concomitant]
     Active Substance: ASPIRIN
  6. SIMVASTATIN [Concomitant]
     Active Substance: SIMVASTATIN
  7. GLUCOPHAGE [Concomitant]
     Active Substance: METFORMIN HYDROCHLORIDE
  8. FISH OIL [Concomitant]
     Active Substance: FISH OIL
  9. MAGNESIUM MALATE [Concomitant]
     Active Substance: MAGNESIUM MALATE
  10. COLLAGEN [Concomitant]
     Active Substance: COLLAGEN

REACTIONS (4)
  - Gallbladder operation [Unknown]
  - Urinary tract infection [Unknown]
  - Psoriasis [Unknown]
  - Arthritis [Unknown]

NARRATIVE: CASE EVENT DATE: 20230320
